FAERS Safety Report 6871886-6 (Version None)
Quarter: 2010Q3

REPORT INFORMATION
  Report Type: 
  Country: None (occurrence: None)
  Receive Date: 20100723
  Receipt Date: 20100714
  Transmission Date: 20110219
  Serious: Yes (Hospitalization, Disabling)
  Sender: FDA-Public Use
  Company Number: JP-JNJFOC-20100706666

PATIENT
  Sex: Male

DRUGS (12)
  1. CRAVIT [Suspect]
     Indication: PRODUCT USED FOR UNKNOWN INDICATION
     Route: 065
  2. LOXONIN [Suspect]
     Indication: PYREXIA
     Dosage: DOSE- 60 MG, 3
     Route: 048
  3. OMEPRAZOLE [Suspect]
     Indication: GASTRIC ULCER
     Route: 048
  4. PENTCILLIN [Suspect]
     Indication: PRODUCT USED FOR UNKNOWN INDICATION
     Route: 065
  5. IMIPENEM AND CILASTATIN [Suspect]
     Indication: PRODUCT USED FOR UNKNOWN INDICATION
     Route: 065
  6. OLMETEC [Concomitant]
     Indication: HYPERTENSION
     Route: 048
  7. FLUITRAN [Concomitant]
     Indication: HYPERTENSION
     Route: 048
  8. TAMSULOSIN HCL [Concomitant]
     Indication: BENIGN PROSTATIC HYPERPLASIA
     Route: 065
  9. DISOPYRAMIDE [Concomitant]
     Indication: ARRHYTHMIA
     Route: 048
  10. ALOSENN [Concomitant]
     Indication: CONSTIPATION
     Route: 048
  11. MYSLEE [Concomitant]
     Indication: INSOMNIA
     Route: 048
  12. KARY UNI [Concomitant]
     Indication: CATARACT
     Dosage: DOSE- 1 DROP
     Route: 047

REACTIONS (1)
  - INTERSTITIAL LUNG DISEASE [None]
